FAERS Safety Report 9238765 (Version 1)
Quarter: 2013Q1

REPORT INFORMATION
  Report Type: Spontaneous
  Country: US (occurrence: None)
  Receive Date: 20121113
  Receipt Date: 20121113
  Transmission Date: 20140127
  Serious: No
  Sender: FDA-Public Use
  Company Number: PHEH2012US016752

PATIENT
  Age: 67 Year
  Sex: Male

DRUGS (3)
  1. ARCAPTA [Suspect]
     Indication: CHRONIC OBSTRUCTIVE PULMONARY DISEASE
     Dosage: QD, INHALATION.
  2. SPIRIVA [Concomitant]
  3. PRO AIR INHALER [Concomitant]

REACTIONS (1)
  - Inappropriate schedule of drug administration [None]
